FAERS Safety Report 8105431-4 (Version None)
Quarter: 2011Q4

REPORT INFORMATION
  Report Type: 
  Country: None (occurrence: None)
  Receive Date: 20111222
  Receipt Date: 20111117
  Transmission Date: 20120403
  Serious: Yes (Hospitalization)
  Sender: FDA-Public Use
  Company Number: UTC-012549

PATIENT
  Age: 48 Year
  Sex: Female
  Weight: 106.8 kg

DRUGS (2)
  1. TRACLEER [Concomitant]
  2. TYVASO [Suspect]
     Indication: PULMONARY ARTERIAL HYPERTENSION
     Dosage: 216 MCG (54 MCG, 4 IN 1 D), INHALATION
     Route: 055

REACTIONS (3)
  - PNEUMONIA [None]
  - LOSS OF CONSCIOUSNESS [None]
  - SYNCOPE [None]
